FAERS Safety Report 9530055 (Version 1)
Quarter: 2013Q3

REPORT INFORMATION
  Report Type: Spontaneous
  Country: DK (occurrence: FR)
  Receive Date: 20130917
  Receipt Date: 20130917
  Transmission Date: 20140515
  Serious: Yes (Death)
  Sender: FDA-Public Use
  Company Number: FR-FRI-1000048934

PATIENT
  Age: 92 Year
  Sex: Male

DRUGS (4)
  1. CITALOPRAM [Suspect]
     Dosage: 20 MG
     Route: 048
     Dates: end: 20130803
  2. LASILIX [Suspect]
     Dosage: 40 MG
     Route: 048
     Dates: end: 20130731
  3. ZYLORIC [Suspect]
     Dosage: 100 MG
     Route: 048
     Dates: end: 20130802
  4. ZYMAD [Concomitant]

REACTIONS (2)
  - Haemorrhagic stroke [Fatal]
  - Fall [Fatal]
